FAERS Safety Report 4877219-9 (Version None)
Quarter: 2005Q4

REPORT INFORMATION
  Report Type: 
  Country: None (occurrence: None)
  Receive Date: 20051206
  Receipt Date: 20050923
  Transmission Date: 20060501
  Serious: No
  Sender: FDA-Public Use
  Company Number: USA0509108974

PATIENT
  Age: 50 Year
  Sex: Male
  Weight: 101 kg

DRUGS (6)
  1. ZYPREXA [Suspect]
     Indication: SCHIZOPHRENIA
     Dosage: 10 MG DAY
     Dates: start: 20010101
  2. CYMBALTA [Suspect]
     Indication: NEURALGIA
     Dosage: 60 MG DAY
     Dates: start: 20041201
  3. SKELAXIN [Concomitant]
  4. NEURONTIN [Concomitant]
  5. CELEBREX [Concomitant]
  6. THYROID TAB [Concomitant]

REACTIONS (6)
  - FALL [None]
  - INTERVERTEBRAL DISC PROTRUSION [None]
  - PAIN [None]
  - RIB FRACTURE [None]
  - STAPHYLOCOCCAL INFECTION [None]
  - WEIGHT DECREASED [None]
